FAERS Safety Report 9373762 (Version 3)
Quarter: 2013Q3

REPORT INFORMATION
  Report Type: Spontaneous
  Country: BR (occurrence: BR)
  Receive Date: 20130628
  Receipt Date: 20130903
  Transmission Date: 20140515
  Serious: Yes (Other)
  Sender: FDA-Public Use
  Company Number: PHHY2013BR065499

PATIENT
  Age: 43 Year
  Sex: Female
  Weight: 112 kg

DRUGS (4)
  1. SINVASTACOR [Suspect]
     Indication: BLOOD CHOLESTEROL INCREASED
     Dosage: 40 MG, QD
     Route: 048
  2. SINVASTACOR [Suspect]
     Dosage: 2 DF, AT NIGHT
     Route: 048
     Dates: start: 20130627
  3. METFORMIN [Concomitant]
     Dosage: 850 MG
  4. CAPTOPRIL [Concomitant]
     Dosage: 25 MG

REACTIONS (1)
  - Eye swelling [Recovered/Resolved]
